FAERS Safety Report 25597382 (Version 1)
Quarter: 2025Q3

REPORT INFORMATION
  Report Type: Spontaneous
  Country: US (occurrence: US)
  Receive Date: 20250723
  Receipt Date: 20250723
  Transmission Date: 20251021
  Serious: Yes (Hospitalization, Congenital Anomaly)
  Sender: BIOMARIN
  Company Number: US-BIOMARINAP-US-2025-167292

PATIENT
  Age: 3 Year
  Sex: Male
  Weight: 10.884 kg

DRUGS (2)
  1. VOXZOGO [Suspect]
     Active Substance: VOSORITIDE
     Indication: Osteochondrodysplasia
     Dosage: UNK UNK, QD
     Dates: start: 20250130
  2. ZOFRAN [Concomitant]
     Active Substance: ONDANSETRON HYDROCHLORIDE
     Indication: Product used for unknown indication

REACTIONS (5)
  - Obstructive sleep apnoea syndrome [Recovered/Resolved]
  - Mouth breathing [Recovered/Resolved]
  - Hypoxia [Recovered/Resolved]
  - Vomiting [Unknown]
  - Administration site pain [Unknown]
